FAERS Safety Report 9135924 (Version 1)
Quarter: 2013Q1

REPORT INFORMATION
  Report Type: Report from Study
  Country: US (occurrence: US)
  Receive Date: 20130304
  Receipt Date: 20130304
  Transmission Date: 20140127
  Serious: No
  Sender: FDA-Public Use
  Company Number: US-ABBOTT-12P-163-1009122-00

PATIENT
  Age: 5 Year
  Sex: Male
  Weight: 19.98 kg

DRUGS (1)
  1. ANDROGEL [Suspect]
     Indication: EXPOSURE VIA FATHER

REACTIONS (2)
  - Hair growth abnormal [Not Recovered/Not Resolved]
  - Accidental exposure to product [Unknown]
